FAERS Safety Report 5334484-1 (Version None)
Quarter: 2007Q2

REPORT INFORMATION
  Report Type: 
  Country: None (occurrence: None)
  Receive Date: 20070308
  Receipt Date: 20061122
  Transmission Date: 20071010
  Serious: No
  Sender: FDA-Public Use
  Company Number: 2006-BP-13785BP

PATIENT
  Sex: Female

DRUGS (1)
  1. SPIRIVA [Suspect]
     Indication: CHRONIC OBSTRUCTIVE PULMONARY DISEASE
     Dosage: 18 MCG (18 MCG, 1 IN 1 D), IH
     Route: 055
     Dates: start: 20060101

REACTIONS (3)
  - DYSPHAGIA [None]
  - PHARYNGOLARYNGEAL PAIN [None]
  - SKIN IRRITATION [None]
